FAERS Safety Report 4441174-6 (Version None)
Quarter: 2004Q3

REPORT INFORMATION
  Report Type: 
  Country: None (occurrence: None)
  Receive Date: 20040728
  Receipt Date: 20040402
  Transmission Date: 20050211
  Serious: No
  Sender: FDA-Public Use
  Company Number: USA040463947

PATIENT
  Age: 42 Year
  Sex: Female
  Weight: 66 kg

DRUGS (4)
  1. STRATTERA [Suspect]
     Indication: ATTENTION DEFICIT/HYPERACTIVITY DISORDER
     Dosage: 40 MG DAY
     Dates: start: 20040326
  2. SARAFEM [Suspect]
     Dates: start: 20010101, end: 20010101
  3. PAXIL [Concomitant]
  4. WELLBUTRIN [Concomitant]

REACTIONS (9)
  - CARDIAC FLUTTER [None]
  - DIZZINESS [None]
  - HEAD DISCOMFORT [None]
  - HOT FLUSH [None]
  - HYPERHIDROSIS [None]
  - NAUSEA [None]
  - PALPITATIONS [None]
  - TINNITUS [None]
  - VOMITING [None]
